FAERS Safety Report 4723550-7 (Version None)
Quarter: 2005Q3

REPORT INFORMATION
  Report Type: 
  Country: None (occurrence: None)
  Receive Date: 20050720
  Receipt Date: 20050720
  Transmission Date: 20060218
  Serious: Yes (Hospitalization)
  Sender: FDA-Public Use
  Company Number: None

PATIENT
  Age: 75 Year
  Sex: Male
  Weight: 108.8633 kg

DRUGS (1)
  1. HEPARIN [Suspect]
     Dosage: DRIP
     Dates: start: 20050121, end: 20050203

REACTIONS (3)
  - DEEP VEIN THROMBOSIS [None]
  - FASCIOTOMY [None]
  - THROMBOCYTOPENIA [None]
